FAERS Safety Report 5993654-X (Version None)
Quarter: 2008Q4

REPORT INFORMATION
  Report Type: 
  Country: None (occurrence: None)
  Receive Date: 20081212
  Receipt Date: 20080618
  Transmission Date: 20090506
  Serious: No
  Sender: FDA-Public Use
  Company Number: US-AMGEN-KDL277362

PATIENT
  Sex: Female

DRUGS (23)
  1. ENBREL [Suspect]
     Indication: RHEUMATOID ARTHRITIS
     Route: 058
     Dates: start: 20080208
  2. LIPITOR [Concomitant]
     Route: 048
  3. BISACODYL [Concomitant]
     Route: 048
  4. BUTALBITAL [Concomitant]
     Route: 048
  5. ASPIRIN/CAFFEINE [Concomitant]
     Route: 048
  6. CHLORHEXIDINE GLUCONATE [Concomitant]
  7. PREMPRO/PREMPHASE [Concomitant]
     Route: 048
  8. DIAZEPAM [Concomitant]
     Route: 048
  9. DULOXETINE [Concomitant]
     Route: 048
  10. FENTANYL-100 [Concomitant]
     Route: 062
  11. FLEXERIL [Concomitant]
     Route: 048
  12. FOLIC ACID [Concomitant]
     Route: 048
  13. GABAPENTIN [Concomitant]
     Route: 048
  14. NORCO [Concomitant]
     Route: 048
  15. HYDROXYZINE HYDROCHLORIDE [Concomitant]
     Route: 048
  16. LANSOPRAZOLE [Concomitant]
     Route: 048
  17. LIDOCAINE [Concomitant]
     Route: 062
  18. LISINOPRIL AND HYDROCHLOROTHIAZIDE [Concomitant]
     Route: 048
  19. METHOTREXATE [Concomitant]
     Route: 058
  20. PRAMIPEXOLE DIHYDROCHLORIDE [Concomitant]
     Route: 048
  21. PROCHLORPERAZINE [Concomitant]
     Route: 048
  22. QUETIAPINE FUMARATE [Concomitant]
     Route: 048
  23. VITAMIN D [Concomitant]
     Route: 048

REACTIONS (8)
  - COSTOCHONDRITIS [None]
  - FATIGUE [None]
  - HEADACHE [None]
  - INSOMNIA [None]
  - NODULE ON EXTREMITY [None]
  - OEDEMA PERIPHERAL [None]
  - RHEUMATOID ARTHRITIS [None]
  - STRESS [None]
